FAERS Safety Report 10005431 (Version 1)
Quarter: 2014Q1

REPORT INFORMATION
  Report Type: Spontaneous
  Country: FR (occurrence: FR)
  Receive Date: 20140313
  Receipt Date: 20140313
  Transmission Date: 20141002
  Serious: Yes (Hospitalization, Disabling)
  Sender: FDA-Public Use
  Company Number: FR-ROCHE-1363513

PATIENT
  Age: 55 Year
  Sex: Male

DRUGS (4)
  1. PEGASYS [Suspect]
     Indication: HEPATITIS C
     Route: 058
     Dates: start: 20081115, end: 20090717
  2. RIBAVIRIN [Suspect]
     Indication: HEPATITIS C
     Route: 048
     Dates: start: 20081115, end: 20090717
  3. PROGRAF [Suspect]
     Indication: PROPHYLAXIS
     Route: 048
     Dates: start: 2006, end: 200909
  4. CELLCEPT [Concomitant]
     Route: 065

REACTIONS (1)
  - Congestive cardiomyopathy [Recovered/Resolved]
